FAERS Safety Report 4963798-X (Version None)
Quarter: 2006Q1

REPORT INFORMATION
  Report Type: 
  Country: None (occurrence: None)
  Receive Date: 20060201
  Receipt Date: 20051118
  Transmission Date: 20060701
  Serious: No
  Sender: FDA-Public Use
  Company Number: 2005PV004588

PATIENT
  Age: 51 Year
  Sex: Female
  Weight: 104.5541 kg

DRUGS (4)
  1. BYETTA [Suspect]
     Indication: DIABETES MELLITUS
     Dosage: 10 + 5 MCG;BID; SC
     Route: 058
     Dates: start: 20050901, end: 20051019
  2. BYETTA [Suspect]
     Indication: DIABETES MELLITUS
     Dosage: 10 + 5 MCG;BID; SC
     Route: 058
     Dates: start: 20051020
  3. METFORMIN [Concomitant]
  4. AMARYL [Concomitant]

REACTIONS (5)
  - CORTISOL FREE URINE DECREASED [None]
  - DECREASED APPETITE [None]
  - INJECTION SITE PAIN [None]
  - NAUSEA [None]
  - WEIGHT DECREASED [None]
